FAERS Safety Report 9638588 (Version 1)
Quarter: 2013Q4

REPORT INFORMATION
  Report Type: Spontaneous
  Country: US (occurrence: None)
  Receive Date: 20131018
  Receipt Date: 20131018
  Transmission Date: 20140711
  Serious: Yes (Life-Threatening, Hospitalization)
  Sender: FDA-Public Use
  Company Number: 2013AP009058

PATIENT
  Age: 65 Year
  Sex: Female

DRUGS (3)
  1. CIPROFLOXACIN [Suspect]
     Indication: URINARY TRACT INFECTION
  2. GLIPIZIDE [Suspect]
  3. LEVOFLOXACIN [Concomitant]

REACTIONS (5)
  - Hypoglycaemia [None]
  - Drug interaction [None]
  - Convulsion [None]
  - Arrhythmia [None]
  - Pneumonia aspiration [None]
